FAERS Safety Report 7166782-3 (Version None)
Quarter: 2010Q4

REPORT INFORMATION
  Report Type: 
  Country: None (occurrence: None)
  Receive Date: 20101216
  Receipt Date: 20101213
  Transmission Date: 20110411
  Serious: Yes (Death)
  Sender: FDA-Public Use
  Company Number: DE-JNJFOC-20101204133

PATIENT
  Age: 78 Year
  Sex: Male

DRUGS (12)
  1. RISPERDAL [Suspect]
     Indication: ILL-DEFINED DISORDER
     Route: 048
  2. RISPERDAL [Suspect]
     Route: 048
  3. RISPERDAL [Suspect]
     Route: 048
  4. SERTRALINE [Suspect]
     Indication: ILL-DEFINED DISORDER
     Route: 048
  5. SERTRALINE [Suspect]
     Route: 048
  6. SERTRALINE [Suspect]
     Route: 048
  7. SIMVASTATIN [Concomitant]
     Route: 048
  8. BISOPROLOL [Concomitant]
     Route: 048
  9. TOREM [Concomitant]
     Route: 048
  10. INSULIN [Concomitant]
     Route: 065
  11. UNKNOWN MEDICATION [Concomitant]
     Route: 065
  12. ASPIRIN [Concomitant]
     Route: 048

REACTIONS (1)
  - MYOCARDIAL INFARCTION [None]
